FAERS Safety Report 6527089-8 (Version None)
Quarter: 2010Q1

REPORT INFORMATION
  Report Type: 
  Country: None (occurrence: None)
  Receive Date: 20100105
  Receipt Date: 20091224
  Transmission Date: 20100710
  Serious: Yes (Hospitalization, Other)
  Sender: FDA-Public Use
  Company Number: TR-ELI_LILLY_AND_COMPANY-TR200912005708

PATIENT
  Sex: Female
  Weight: 2.5 kg

DRUGS (2)
  1. HUMULIN R [Suspect]
     Indication: GESTATIONAL DIABETES
     Dosage: 24 IU, DAILY (1/D)
     Route: 064
     Dates: start: 20090101, end: 20091013
  2. HUMULIN N [Suspect]
     Indication: GESTATIONAL DIABETES
     Dosage: 6 IU, DAILY (1/D)
     Route: 064
     Dates: start: 20090101, end: 20091013

REACTIONS (2)
  - DRUG EXPOSURE DURING PREGNANCY [None]
  - PREMATURE BABY [None]
